FAERS Safety Report 5320304-8 (Version None)
Quarter: 2007Q2

REPORT INFORMATION
  Report Type: 
  Country: None (occurrence: None)
  Receive Date: 20070503
  Receipt Date: 20070503
  Transmission Date: 20071010
  Serious: Yes (Death)
  Sender: FDA-Public Use
  Company Number: None

PATIENT
  Age: 26 Year
  Sex: Male
  Weight: 70.7611 kg

DRUGS (4)
  1. PROZAC [Suspect]
     Indication: BIPOLAR DISORDER
     Dosage: DAILY PO
     Route: 048
  2. PROZAC [Suspect]
     Indication: DEPRESSION
     Dosage: DAILY PO
     Route: 048
  3. GEODON [Suspect]
     Indication: BIPOLAR DISORDER
     Dosage: DAILY PO
     Route: 048
  4. GEODON [Suspect]
     Indication: DEPRESSION
     Dosage: DAILY PO
     Route: 048

REACTIONS (9)
  - AGGRESSION [None]
  - COMPLETED SUICIDE [None]
  - CRYING [None]
  - DRUG INEFFECTIVE [None]
  - GUN SHOT WOUND [None]
  - HEAD INJURY [None]
  - SCREAMING [None]
  - TRANCE [None]
  - TREATMENT NONCOMPLIANCE [None]
